FAERS Safety Report 10218446 (Version 1)
Quarter: 2014Q2

REPORT INFORMATION
  Report Type: Spontaneous
  Country: SE (occurrence: SE)
  Receive Date: 20140605
  Receipt Date: 20140605
  Transmission Date: 20141212
  Serious: Yes (Other)
  Sender: FDA-Public Use
  Company Number: PHHY2014SE065410

PATIENT
  Sex: Female

DRUGS (6)
  1. EVEROLIMUS [Suspect]
     Indication: INSULINOMA
     Dosage: 10 MG, UNK
     Dates: start: 201209, end: 201210
  2. EVEROLIMUS [Suspect]
     Indication: OFF LABEL USE
     Dosage: UNK
     Dates: end: 201304
  3. EVEROLIMUS [Suspect]
     Dosage: 10 MG THREE TIMES A WEEK AND 5 MG FOUR TIMES A WEEK
  4. 5-FLUOROURACIL [Suspect]
     Indication: INSULINOMA
  5. STREPTOZOCIN [Suspect]
     Indication: INSULINOMA
  6. GLUCOSE [Concomitant]
     Route: 042

REACTIONS (6)
  - Sepsis [Unknown]
  - Renal impairment [Unknown]
  - Blood creatinine increased [Unknown]
  - Hypoglycaemia [Unknown]
  - Pneumonitis [Unknown]
  - Malignant neoplasm progression [Unknown]
